FAERS Safety Report 5211326-6 (Version None)
Quarter: 2007Q1

REPORT INFORMATION
  Report Type: 
  Country: None (occurrence: None)
  Receive Date: 20070111
  Receipt Date: 20070104
  Transmission Date: 20070707
  Serious: Yes (Death)
  Sender: FDA-Public Use
  Company Number: CLOF-10424

PATIENT
  Age: 67 Year
  Sex: Male

DRUGS (2)
  1. CLOFARABINE [Suspect]
     Indication: ACUTE MYELOID LEUKAEMIA
     Dosage: 84 MG DAILY IV
     Route: 042
     Dates: start: 20061222, end: 20061226
  2. CYTARABINE [Suspect]
     Indication: ACUTE MYELOID LEUKAEMIA
     Dosage: 2.1 G DAILY IV
     Route: 042
     Dates: start: 20061221, end: 20061225

REACTIONS (3)
  - HYPOTENSION [None]
  - NO THERAPEUTIC RESPONSE [None]
  - SEPSIS [None]
